FAERS Safety Report 7586829-X (Version None)
Quarter: 2011Q3

REPORT INFORMATION
  Report Type: 
  Country: None (occurrence: None)
  Receive Date: 20110701
  Receipt Date: 20110623
  Transmission Date: 20111222
  Serious: Yes (Life-Threatening, Hospitalization)
  Sender: FDA-Public Use
  Company Number: FR-CEPHALON-2011003092

PATIENT
  Sex: Male
  Weight: 83 kg

DRUGS (2)
  1. BENDAMUSTINE HCL [Suspect]
     Route: 042
     Dates: start: 20101115
  2. RITUXIMAB [Suspect]
     Route: 042
     Dates: start: 20101115

REACTIONS (2)
  - LUNG DISORDER [None]
  - CARDIAC FAILURE [None]
